FAERS Safety Report 18845762 (Version 1)
Quarter: 2021Q1

REPORT INFORMATION
  Report Type: Report from Study
  Country: US (occurrence: US)
  Receive Date: 20210203
  Receipt Date: 20210203
  Transmission Date: 20210419
  Serious: No
  Sender: FDA-Public Use
  Company Number: US-EXELIXIS-CABO-20029972

PATIENT
  Sex: Male

DRUGS (3)
  1. CABOMETYX [Suspect]
     Active Substance: CABOZANTINIB S-MALATE
     Dosage: 20 MG
  2. CABOMETYX [Suspect]
     Active Substance: CABOZANTINIB S-MALATE
     Indication: METASTASES TO BONE
     Dosage: 40 MG, QD
     Dates: start: 20200520
  3. CABOMETYX [Suspect]
     Active Substance: CABOZANTINIB S-MALATE
     Indication: HEPATOCELLULAR CARCINOMA
     Dosage: 60 MG, QD
     Dates: start: 20200420

REACTIONS (16)
  - Diarrhoea [Recovered/Resolved]
  - Blister [Unknown]
  - Erythema [Unknown]
  - Fatigue [Recovering/Resolving]
  - Off label use [Unknown]
  - Skin ulcer [Unknown]
  - Flatulence [Unknown]
  - Pain in extremity [Unknown]
  - Stomatitis [Not Recovered/Not Resolved]
  - Vomiting [Recovered/Resolved]
  - Malignant neoplasm progression [Unknown]
  - Nausea [Recovering/Resolving]
  - Skin fragility [Unknown]
  - Toxicity to various agents [Unknown]
  - Decreased appetite [Recovering/Resolving]
  - Drug ineffective [Unknown]
